FAERS Safety Report 8443092-5 (Version None)
Quarter: 2012Q2

REPORT INFORMATION
  Report Type: 
  Country: None (occurrence: None)
  Receive Date: 20120615
  Receipt Date: 20120608
  Transmission Date: 20120825
  Serious: Yes (Hospitalization, Other)
  Sender: FDA-Public Use
  Company Number: US-PFIZER INC-2011056934

PATIENT
  Sex: Female

DRUGS (4)
  1. NEURONTIN [Concomitant]
     Dosage: 600 MG, 1X/DAY AT BEDTIME
     Dates: end: 20041230
  2. DILANTIN-125 [Suspect]
     Indication: CONVULSION
     Dosage: 400 MG, 2X/DAY
     Route: 048
     Dates: end: 20041230
  3. ALBUTEROL [Concomitant]
     Dosage: UNK
  4. VALIUM [Concomitant]
     Dosage: UNK

REACTIONS (2)
  - ACUTE RESPIRATORY FAILURE [None]
  - HYPERSENSITIVITY [None]
